FAERS Safety Report 7693679-2 (Version None)
Quarter: 2011Q3

REPORT INFORMATION
  Report Type: 
  Country: None (occurrence: None)
  Receive Date: 20110819
  Receipt Date: 20110811
  Transmission Date: 20111222
  Serious: Yes (Hospitalization)
  Sender: FDA-Public Use
  Company Number: CA-ROCHE-796264

PATIENT
  Age: 32 Year
  Sex: Female

DRUGS (1)
  1. HERCEPTIN [Suspect]
     Route: 042

REACTIONS (2)
  - POSTERIOR REVERSIBLE ENCEPHALOPATHY SYNDROME [None]
  - NERVOUS SYSTEM DISORDER [None]
